FAERS Safety Report 4975561-4 (Version None)
Quarter: 2006Q2

REPORT INFORMATION
  Report Type: 
  Country: None (occurrence: None)
  Receive Date: 20060410
  Receipt Date: 20060321
  Transmission Date: 20061013
  Serious: Yes (Hospitalization)
  Sender: FDA-Public Use
  Company Number: ENT 2006-0014

PATIENT
  Age: 80 Year
  Sex: Male

DRUGS (3)
  1. COMTESS (ENTACAPONE) [Suspect]
     Indication: PARKINSON'S DISEASE
     Dosage: 800 MG
     Route: 048
     Dates: start: 20051013, end: 20051110
  2. ALMIRID [Suspect]
     Indication: PARKINSON'S DISEASE
     Dosage: 60 MG
     Route: 048
     Dates: start: 20051013, end: 20051110
  3. LEVODOPA [Suspect]
     Indication: PARKINSON'S DISEASE
     Dosage: 500 MG
     Route: 048
     Dates: start: 20051013, end: 20051110

REACTIONS (4)
  - ASCITES [None]
  - BLOOD CREATINE INCREASED [None]
  - GENERALISED OEDEMA [None]
  - PLEURAL EFFUSION [None]
